FAERS Safety Report 4308370-X (Version None)
Quarter: 2004Q1

REPORT INFORMATION
  Report Type: 
  Country: None (occurrence: None)
  Receive Date: 20040301
  Receipt Date: 20030617
  Transmission Date: 20041129
  Serious: Yes (Hospitalization)
  Sender: FDA-Public Use
  Company Number: US-GLAXOSMITHKLINE-A0413823A

PATIENT
  Age: 66 Year
  Sex: Female
  Weight: 92.3 kg

DRUGS (26)
  1. AVANDIA [Suspect]
     Indication: DIABETES MELLITUS NON-INSULIN-DEPENDENT
     Route: 048
     Dates: start: 20000101
  2. LASIX [Concomitant]
  3. COZAAR [Concomitant]
  4. COUMADIN [Concomitant]
  5. LANOXIN [Concomitant]
  6. POTASSIUM [Concomitant]
  7. AMIODARONE HCL [Concomitant]
  8. ZAROXOLYN [Concomitant]
  9. GLUCOTROL [Concomitant]
  10. MICRO-K [Concomitant]
  11. CORDARONE [Concomitant]
  12. TUMS [Concomitant]
  13. SURFAK [Concomitant]
  14. NEPHRO-VITE [Concomitant]
  15. FOLIC ACID [Concomitant]
  16. LEVAQUIN [Concomitant]
  17. DEMADEX [Concomitant]
  18. PAXIL [Concomitant]
  19. HEPARIN [Concomitant]
  20. AMBIEN [Concomitant]
  21. ZOCOR [Concomitant]
  22. PHOSLO [Concomitant]
  23. NEPHROCAPS [Concomitant]
  24. ATARAX [Concomitant]
  25. LOPRESSOR [Concomitant]
  26. BUMEX [Concomitant]
     Dosage: 1MG TWICE PER DAY

REACTIONS (34)
  - ABDOMINAL DISTENSION [None]
  - ASCITES [None]
  - ATRIAL FIBRILLATION [None]
  - CARBOHYDRATE ANTIGEN 125 INCREASED [None]
  - CARDIAC FAILURE CONGESTIVE [None]
  - CARDIAC MURMUR [None]
  - CONGESTIVE CARDIOMYOPATHY [None]
  - CONSTIPATION [None]
  - CORONARY ARTERY ATHEROSCLEROSIS [None]
  - DIALYSIS [None]
  - ECHOCARDIOGRAM ABNORMAL [None]
  - EJECTION FRACTION DECREASED [None]
  - ESCHERICHIA INFECTION [None]
  - FLUID OVERLOAD [None]
  - FLUID RETENTION [None]
  - HEART INJURY [None]
  - HEART RATE IRREGULAR [None]
  - HEPATIC FAILURE [None]
  - HEPATOCELLULAR DAMAGE [None]
  - HYPERTENSIVE NEPHROPATHY [None]
  - HYPOTENSION [None]
  - IRON DEFICIENCY ANAEMIA [None]
  - MALNUTRITION [None]
  - MITRAL VALVE INCOMPETENCE [None]
  - MITRAL VALVE STENOSIS [None]
  - ORTHOPNOEA [None]
  - RENAL FAILURE ACUTE [None]
  - RENAL FAILURE CHRONIC [None]
  - RIGHT VENTRICULAR FAILURE [None]
  - SICK SINUS SYNDROME [None]
  - STREPTOCOCCAL INFECTION [None]
  - THERAPEUTIC AGENT TOXICITY [None]
  - URINARY TRACT INFECTION [None]
  - WEIGHT INCREASED [None]
